FAERS Safety Report 8932436 (Version 2)
Quarter: 2013Q1

REPORT INFORMATION
  Report Type: Report from Study
  Country: US (occurrence: US)
  Receive Date: 20121128
  Receipt Date: 20130109
  Transmission Date: 20140127
  Serious: Yes (Death)
  Sender: FDA-Public Use
  Company Number: US-ROCHE-1159116

PATIENT
  Age: 83 Year
  Sex: Male
  Weight: 78.09 kg

DRUGS (10)
  1. CAPECITABINE [Suspect]
     Indication: OESOPHAGEAL CARCINOMA
     Route: 065
     Dates: start: 20090303, end: 20090306
  2. CAPECITABINE [Suspect]
     Route: 065
     Dates: start: 20090303, end: 20090306
  3. IRINOTECAN HYDROCHLORIDE [Concomitant]
  4. CARBOPLATIN [Concomitant]
  5. PACLITAXEL [Concomitant]
  6. LEXAPRO [Concomitant]
     Indication: DEPRESSION
     Route: 065
     Dates: start: 20090223
  7. TRANDATE [Concomitant]
     Dosage: THERAPY START DATE: SINCE LONG TERM
     Route: 065
  8. SENNA S [Concomitant]
     Route: 065
  9. TYLENOL [Concomitant]
     Route: 065
  10. KEPPRA [Concomitant]
     Indication: METASTASES TO CENTRAL NERVOUS SYSTEM
     Route: 065
     Dates: start: 20090317

REACTIONS (3)
  - Oesophageal carcinoma [Fatal]
  - Myelodysplastic syndrome [Fatal]
  - Metastases to central nervous system [Fatal]
